FAERS Safety Report 9160458 (Version 2)
Quarter: 2013Q2

REPORT INFORMATION
  Report Type: Spontaneous
  Country: CH (occurrence: None)
  Receive Date: 20130219
  Receipt Date: 20130424
  Transmission Date: 20140414
  Serious: Yes (Hospitalization, Other)
  Sender: FDA-Public Use
  Company Number: INT_00203_2013

PATIENT
  Age: 63 Year
  Sex: Male
  Weight: 84 kg

DRUGS (1)
  1. CEFEPIME [Suspect]
     Indication: FEBRILE NEUTROPENIA
     Dosage: (2 G 1 X/8 HOURS)

REACTIONS (3)
  - Neurotoxicity [None]
  - Myoclonus [None]
  - Overdose [None]
